FAERS Safety Report 8941958 (Version 1)
Quarter: 2012Q4

REPORT INFORMATION
  Report Type: 
  Country: JP (occurrence: JP)
  Receive Date: 20121203
  Receipt Date: 20121203
  Transmission Date: 20130627
  Serious: Yes (Death, Life-Threatening, Other)
  Sender: FDA-Public Use
  Company Number: JP-009507513-2012SP026603

PATIENT
  Age: 83 Year
  Sex: Male
  Weight: 46 kg

DRUGS (16)
  1. TEMOZOLOMIDE [Suspect]
     Indication: GLIOBLASTOMA MULTIFORME
     Dosage: UNK UNK, qd
     Route: 048
     Dates: start: 20111211, end: 20111226
  2. TEMOZOLOMIDE [Suspect]
     Dosage: 75 mg/m2, qd
     Route: 048
     Dates: start: 20120107, end: 20120121
  3. TEMODAL [Suspect]
     Indication: GLIOBLASTOMA MULTIFORME
     Dosage: 75 mg/m2, qd (intravenous drip)
     Route: 042
     Dates: start: 20111227, end: 20120106
  4. SOL MELCORT [Concomitant]
     Dosage: 125 mg, QD
     Route: 041
     Dates: start: 20120111, end: 20120125
  5. BACTRAMIN [Concomitant]
     Indication: ANTIFUNGAL PROPHYLAXIS
     Dosage: UNK
     Route: 048
     Dates: end: 20111230
  6. GASMOTIN [Concomitant]
     Dosage: 5 mg, tid
     Route: 048
     Dates: end: 20111214
  7. SEVEN E-P [Concomitant]
     Dosage: 1 DF, tid
     Route: 048
     Dates: end: 20111214
  8. BIOSMIN [Concomitant]
     Dosage: 1 g, tid
     Route: 048
     Dates: end: 20111214
  9. TAKEPRON [Concomitant]
     Dosage: 15 mg, qd
     Route: 048
     Dates: end: 20111214
  10. PRIMPERAN [Concomitant]
     Dosage: 5 mg, tid
     Route: 048
     Dates: end: 20111214
  11. RENIVACE [Concomitant]
     Dosage: 2.5 mg, qd
     Route: 048
     Dates: end: 20111214
  12. ADJUST A [Concomitant]
     Dosage: 40 mg, bid
     Route: 048
  13. LENDORMIN [Concomitant]
     Dosage: 0.25 mg, qd
     Route: 048
  14. MAGNESIUM OXIDE [Concomitant]
     Dosage: 0.5 g, tid
     Route: 048
     Dates: end: 20111214
  15. ADONA [Concomitant]
     Dosage: 30 mg, tid
     Route: 048
     Dates: end: 20111214
  16. TRANSAMIN [Concomitant]
     Dosage: 250 mg, tid
     Route: 048
     Dates: end: 20111214

REACTIONS (7)
  - Lymphocyte count decreased [Not Recovered/Not Resolved]
  - Platelet count decreased [Recovered/Resolved]
  - Anaemia [Recovered/Resolved]
  - Disease progression [Fatal]
  - Pneumonia aspiration [Recovering/Resolving]
  - White blood cell count increased [Recovered/Resolved]
  - Increased viscosity of bronchial secretion [None]
